FAERS Safety Report 6329837-9 (Version None)
Quarter: 2009Q3

REPORT INFORMATION
  Report Type: 
  Country: None (occurrence: None)
  Receive Date: 20090826
  Receipt Date: 20090819
  Transmission Date: 20100115
  Serious: Yes (Hospitalization, Other)
  Sender: FDA-Public Use
  Company Number: US-CELGENEUS-163-50794-09072150

PATIENT
  Sex: Male
  Weight: 97.61 kg

DRUGS (8)
  1. VIDAZA [Suspect]
     Indication: PROSTATE CANCER
     Route: 051
     Dates: start: 20090112, end: 20090720
  2. PREDNISONE TAB [Suspect]
     Indication: PROSTATE CANCER
     Route: 065
  3. DOCETAXEL [Suspect]
     Indication: PROSTATE CANCER
     Route: 051
     Dates: start: 20090413, end: 20090720
  4. DOCETAXEL [Suspect]
     Route: 051
     Dates: start: 20090112, end: 20090126
  5. PLAVIX [Concomitant]
     Indication: DRUG USE FOR UNKNOWN INDICATION
     Route: 065
  6. ASPIRIN [Concomitant]
     Indication: DRUG USE FOR UNKNOWN INDICATION
     Route: 065
  7. FLUCONAZOLE [Concomitant]
     Route: 065
     Dates: start: 20090101
  8. FLUCONAZOLE [Concomitant]
     Indication: CHEST PAIN
     Route: 065
     Dates: start: 20090101, end: 20090101

REACTIONS (3)
  - ANAEMIA [None]
  - FEBRILE NEUTROPENIA [None]
  - OESOPHAGEAL CANDIDIASIS [None]
